FAERS Safety Report 9687964 (Version 1)
Quarter: 2013Q4

REPORT INFORMATION
  Report Type: Spontaneous
  Country: NL (occurrence: None)
  Receive Date: 20131112
  Receipt Date: 20131112
  Transmission Date: 20140711
  Serious: Yes (Life-Threatening)
  Sender: FDA-Public Use
  Company Number: 1998227

PATIENT
  Age: 81 Year
  Sex: Male
  Weight: 85 kg

DRUGS (16)
  1. (DEXMEDETOMIDINE HYDROCHLORIDE) [Suspect]
     Indication: RESTLESSNESS
     Dosage: 100 MCG/ML, UNKNOWN, UNKNOWN
     Dates: start: 20131010, end: 20131011
  2. METOPROLOL SUCCINATE [Suspect]
     Indication: TACHYCARDIA
     Dosage: 95 MG MILLIGRAM(S), 2 DAY, UNKNOWN
     Dates: start: 20131009
  3. (SIMVASTATIN) [Concomitant]
  4. (COLECALCIFEROL) [Concomitant]
  5. (MACROGOL) [Concomitant]
  6. (IVABRADINE) [Concomitant]
  7. (ACETYLCYSTEINE) [Concomitant]
  8. (HALOPERIDOL) [Concomitant]
  9. (MIDAZOLAM) [Concomitant]
  10. (PREDNISOLONE) [Concomitant]
  11. (INSULIN HUMAN) [Concomitant]
  12. (SPIRONOLACTONE) [Concomitant]
  13. (PANTOPRAZOLE) [Concomitant]
  14. (THIAMINE) [Concomitant]
  15. (TICAGRELOR) [Concomitant]
  16. (NADROPARIN CALCIUM) [Concomitant]

REACTIONS (3)
  - Drug interaction [None]
  - Cardiac arrest [None]
  - Atrioventricular block complete [None]
